FAERS Safety Report 8867362 (Version 1)
Quarter: 2012Q4

REPORT INFORMATION
  Report Type: 
  Country: US (occurrence: US)
  Receive Date: 20121025
  Receipt Date: 20121025
  Transmission Date: 20130627
  Serious: Yes (Hospitalization)
  Sender: FDA-Public Use
  Company Number: US-AMGEN-USASP2012016225

PATIENT
  Age: 47 Year
  Sex: Female

DRUGS (1)
  1. ENBREL [Suspect]
     Indication: RHEUMATOID ARTHRITIS
     Dosage: 50 mg, qwk
     Dates: start: 2005, end: 201107

REACTIONS (4)
  - Escherichia urinary tract infection [Recovered/Resolved]
  - Kidney infection [Recovered/Resolved]
  - Sepsis [Recovered/Resolved]
  - Pain [Not Recovered/Not Resolved]
